FAERS Safety Report 7593139-3 (Version None)
Quarter: 2011Q3

REPORT INFORMATION
  Report Type: 
  Country: None (occurrence: None)
  Receive Date: 20110706
  Receipt Date: 20110701
  Transmission Date: 20111222
  Serious: Yes (Hospitalization, Other)
  Sender: FDA-Public Use
  Company Number: FR-PFIZER INC-2011147317

PATIENT
  Age: 55 Year
  Sex: Female

DRUGS (12)
  1. ATORVASTATIN CALCIUM [Concomitant]
  2. ZOLOFT [Suspect]
     Dosage: UNK
     Route: 048
     Dates: end: 20110216
  3. INDAPAMIDE [Suspect]
     Dosage: UNK
     Route: 048
     Dates: end: 20110216
  4. CLONAZEPAM [Concomitant]
  5. PLAVIX [Concomitant]
  6. ASPIRIN [Concomitant]
  7. AMLODIPINE [Concomitant]
  8. LASIX [Suspect]
     Dosage: 40 MG SCORED TABLET
     Route: 048
     Dates: end: 20110216
  9. NEBIVOLOL [Concomitant]
     Indication: TACHYCARDIA
  10. PROCORALAN [Suspect]
     Indication: TACHYCARDIA
  11. NEBIVOLOL [Concomitant]
     Indication: PERIPHERAL VASCULAR DISORDER
     Dosage: 5 MG QUADRIC-SCORED TABLET
     Route: 048
     Dates: start: 20110131, end: 20110214
  12. PROCORALAN [Suspect]
     Indication: PERIPHERAL VASCULAR DISORDER
     Dosage: UNK
     Route: 048
     Dates: start: 20110131, end: 20110212

REACTIONS (5)
  - HYPONATRAEMIA [None]
  - DECREASED APPETITE [None]
  - NAUSEA [None]
  - ASTHENIA [None]
  - ANAEMIA MACROCYTIC [None]
